FAERS Safety Report 19196322 (Version 2)
Quarter: 2021Q2

REPORT INFORMATION
  Report Type: Report from Study
  Country: US (occurrence: US)
  Receive Date: 20210429
  Receipt Date: 20210518
  Transmission Date: 20210717
  Serious: Yes (Other)
  Sender: FDA-Public Use
  Company Number: US-NOVOPROD-805839

PATIENT
  Sex: Female

DRUGS (4)
  1. NOVOLOG [Suspect]
     Active Substance: INSULIN ASPART
     Indication: DIABETES MELLITUS
     Dosage: 30 IU, QD
     Route: 058
     Dates: start: 2019
  2. NOVOLIN 70/30 [Suspect]
     Active Substance: INSULIN HUMAN
     Indication: DIABETES MELLITUS
     Dosage: 2007  THEN INTERMITTENTLY WHEN FLEXPENS UNAVAILABLE
     Route: 058
     Dates: start: 2007
  3. NOVOLOG MIX 70/30 [Suspect]
     Active Substance: INSULIN ASPART
     Dosage: UNK
     Route: 058
  4. NOVOLOG MIX 70/30 [Suspect]
     Active Substance: INSULIN ASPART
     Indication: DIABETES MELLITUS
     Dosage: 100 IU, QD (70 UNITS QAM + 30 UNITS QPM)
     Route: 058

REACTIONS (4)
  - Wrong technique in product usage process [Unknown]
  - Diabetic retinopathy [Not Recovered/Not Resolved]
  - Condition aggravated [Not Recovered/Not Resolved]
  - Incorrect dose administered [Unknown]
